FAERS Safety Report 12286053 (Version 2)
Quarter: 2016Q2

REPORT INFORMATION
  Report Type: Spontaneous
  Country: US (occurrence: US)
  Receive Date: 20160420
  Receipt Date: 20160502
  Transmission Date: 20160815
  Serious: Yes (Hospitalization, Other)
  Sender: FDA-Public Use
  Company Number: US-BAXTER-2016BAX017556

PATIENT
  Age: 58 Year
  Sex: Male

DRUGS (1)
  1. EXTRANEAL [Suspect]
     Active Substance: CALCIUM CHLORIDE\ICODEXTRIN\MAGNESIUM CHLORIDE\SODIUM CHLORIDE\SODIUM LACTATE
     Indication: PERITONEAL DIALYSIS
     Route: 033
     Dates: end: 20160303

REACTIONS (13)
  - Peritonitis [Unknown]
  - Peritonitis [Unknown]
  - Decreased activity [Unknown]
  - Peritoneal cloudy effluent [Unknown]
  - Device related infection [Unknown]
  - Peritoneal dialysis complication [Unknown]
  - Peritonitis bacterial [Unknown]
  - Bacterial infection [Unknown]
  - Peritonitis bacterial [Unknown]
  - Peritonitis [Unknown]
  - Infection [Unknown]
  - Hernia [Unknown]
  - Peritonitis bacterial [Unknown]

NARRATIVE: CASE EVENT DATE: 201504
